FAERS Safety Report 9315141 (Version 1)
Quarter: 2013Q2

REPORT INFORMATION
  Report Type: Spontaneous
  Country: US (occurrence: US)
  Receive Date: 20130529
  Receipt Date: 20130529
  Transmission Date: 20140414
  Serious: Yes (Other)
  Sender: FDA-Public Use
  Company Number: US-BAYER-2013-063965

PATIENT
  Age: 71 Year
  Sex: Female
  Weight: 58.05 kg

DRUGS (3)
  1. BAYER ASPIRIN REGIMEN ADULT LOW STRENGTH [Suspect]
     Indication: CARDIOVASCULAR DISORDER
     Dosage: 2 DF, QD
     Route: 048
     Dates: start: 201209, end: 201210
  2. ALEVE CAPLET [Suspect]
     Dosage: 2 DF, PRN
     Route: 048
     Dates: end: 201210
  3. PRILOSEC [Concomitant]

REACTIONS (6)
  - Haematemesis [Recovered/Resolved]
  - Faeces discoloured [Recovered/Resolved]
  - Diarrhoea [Recovered/Resolved]
  - Haemoglobin decreased [Recovered/Resolved]
  - Incorrect drug administration duration [None]
  - Off label use [None]
